FAERS Safety Report 24419700 (Version 1)
Quarter: 2024Q4

REPORT INFORMATION
  Report Type: Spontaneous
  Country: CN (occurrence: CN)
  Receive Date: 20241010
  Receipt Date: 20241010
  Transmission Date: 20250115
  Serious: Yes (Hospitalization)
  Sender: SANDOZ
  Company Number: CN-002147023-NVSC2024CN197232

PATIENT
  Age: 55 Year
  Sex: Male
  Weight: 78.5 kg

DRUGS (2)
  1. DEXAMETHASONE\TOBRAMYCIN [Suspect]
     Active Substance: DEXAMETHASONE\TOBRAMYCIN
     Indication: Inflammation
     Dosage: 3 DROP, QD, 1 DRP, TID
     Route: 047
     Dates: start: 20240925, end: 20241002
  2. ATROPINE SULFATE [Concomitant]
     Active Substance: ATROPINE SULFATE
     Indication: Adhesion
     Dosage: 1 DROP, QD, 1 DRP, QD
     Route: 047
     Dates: start: 20240925, end: 20241002

REACTIONS (2)
  - Discomfort [Recovered/Resolved]
  - Eye pain [Recovered/Resolved]

NARRATIVE: CASE EVENT DATE: 20240925
